FAERS Safety Report 19310432 (Version 2)
Quarter: 2021Q3

REPORT INFORMATION
  Report Type: Spontaneous
  Country: IN (occurrence: IN)
  Receive Date: 20210526
  Receipt Date: 20210811
  Transmission Date: 20211014
  Serious: Yes (Death, Other)
  Sender: FDA-Public Use
  Company Number: IN-PFIZER INC-2018329811

PATIENT
  Age: 57 Year
  Sex: Male

DRUGS (3)
  1. ONCOLIFE PLUS [Concomitant]
     Dosage: UNK, 1X/DAY
  2. CRIZALK [Suspect]
     Active Substance: CRIZOTINIB
     Indication: LUNG NEOPLASM MALIGNANT
  3. CRIZALK [Suspect]
     Active Substance: CRIZOTINIB
     Indication: ALK GENE REARRANGEMENT POSITIVE
     Dosage: 250 MG, 2X/DAY
     Route: 048
     Dates: start: 20171009, end: 20210512

REACTIONS (1)
  - Myocardial infarction [Fatal]
